FAERS Safety Report 4471114-5 (Version None)
Quarter: 2004Q4

REPORT INFORMATION
  Report Type: 
  Country: None (occurrence: None)
  Receive Date: 20041005
  Receipt Date: 20040922
  Transmission Date: 20050328
  Serious: Yes (Death)
  Sender: FDA-Public Use
  Company Number: B0346023A

PATIENT
  Sex: Female

DRUGS (2)
  1. NAVELBINE [Suspect]
     Dosage: 25 MG/M2 CYCLIC INTRAVENOUS
     Route: 042
  2. EPIRUBICIN [Suspect]
     Dosage: 90 MG/M2 CYCLIC INTRAVENOUS
     Route: 042

REACTIONS (3)
  - CARDIAC FAILURE [None]
  - CARDIAC FAILURE CONGESTIVE [None]
  - EJECTION FRACTION DECREASED [None]
